FAERS Safety Report 24249177 (Version 8)
Quarter: 2025Q3

REPORT INFORMATION
  Report Type: Spontaneous
  Country: CA (occurrence: CA)
  Receive Date: 20240826
  Receipt Date: 20250930
  Transmission Date: 20251021
  Serious: Yes (Other)
  Sender: PFIZER
  Company Number: CA-PFIZER INC-PV202400067795

PATIENT
  Age: 61 Year
  Sex: Male

DRUGS (4)
  1. INLYTA [Suspect]
     Active Substance: AXITINIB
     Indication: Metastatic renal cell carcinoma
     Dosage: 3 MG, 2X/DAY(TAKE 3 TABLETS (3MG TOTAL) BY MOUTH 2 (TWO) TIMES A DAYS FOR 21 DAYS)
     Route: 048
     Dates: start: 20231002
  2. INLYTA [Suspect]
     Active Substance: AXITINIB
     Dosage: 2 MG, 2X/DAY (1MG TABLET TAKE 2 TABLETS (2MG TOTAL) BY MOUTH 2 TIMES A DAY FOR 21 DAYS)
     Route: 048
     Dates: start: 20250404
  3. INLYTA [Suspect]
     Active Substance: AXITINIB
     Dosage: 1 MG, 2X/DAY(1 MG TABLET, TAKE 2 TABLETS (2MG TOTAL) BY MOUTH 2 TIMES A DAY FOR 21 DAYS)
     Route: 048
     Dates: start: 20250627
  4. KEYTRUDA [Concomitant]
     Active Substance: PEMBROLIZUMAB

REACTIONS (1)
  - Diverticulitis [Unknown]

NARRATIVE: CASE EVENT DATE: 20240328
